FAERS Safety Report 9676312 (Version 2)
Quarter: 2013Q4

REPORT INFORMATION
  Report Type: Spontaneous
  Country: US (occurrence: DE)
  Receive Date: 20131107
  Receipt Date: 20131112
  Transmission Date: 20140711
  Serious: Yes (Hospitalization)
  Sender: FDA-Public Use
  Company Number: DE-FRI-1000050840

PATIENT
  Age: 67 Year
  Sex: Female
  Weight: 50 kg

DRUGS (5)
  1. ROFLUMILAST [Suspect]
     Indication: INFECTION PROPHYLAXIS
     Dosage: 1 DF
     Dates: start: 20120924, end: 20130516
  2. ROFLUMILAST [Suspect]
     Indication: CHRONIC OBSTRUCTIVE PULMONARY DISEASE
     Dosage: 1 DF QOD
     Dates: start: 20130517
  3. FORMOTEROL [Concomitant]
  4. SPIRIVA [Concomitant]
  5. DAFIRO HCT [Concomitant]

REACTIONS (4)
  - Squamous cell carcinoma of the oral cavity [Unknown]
  - Cough [Not Recovered/Not Resolved]
  - Weight decreased [Unknown]
  - Off label use [Not Recovered/Not Resolved]
